FAERS Safety Report 8102054 (Version 6)
Quarter: 2013Q1

REPORT INFORMATION
  Report Type: Spontaneous
  Country: US (occurrence: US)
  Receive Date: 20110823
  Receipt Date: 20130318
  Transmission Date: 20140127
  Serious: Yes (Hospitalization, Other)
  Sender: FDA-Public Use
  Company Number: US-ELI_LILLY_AND_COMPANY-US201105004959

PATIENT
  Age: 82 Year
  Sex: Female
  Weight: 62 kg

DRUGS (18)
  1. FORTEO [Suspect]
     Indication: OSTEOPOROSIS
     Dosage: 20 UG, QD
  2. FORTEO [Suspect]
     Dosage: 20 UG, QD
  3. FORTEO [Suspect]
     Dosage: 20 UG, QD
  4. FORTEO [Suspect]
     Dosage: 20 UG, QD
  5. FORTEO [Suspect]
     Dosage: 20 UG, QD
  6. FORTEO [Suspect]
     Dosage: 20 UG, QD
  7. FORTEO [Suspect]
     Dosage: 20 UG, QD
  8. FORTEO [Suspect]
     Dosage: 20 UG, QD
  9. FORTEO [Suspect]
     Dosage: 20 UG, QD
  10. EVISTA [Suspect]
     Dosage: UNK
     Dates: end: 201011
  11. CALCIUM [Concomitant]
     Dosage: 1500 MG, UNK
  12. A + D OINTMENT [Concomitant]
     Indication: DYSPNOEA
  13. VITAMIN D [Concomitant]
  14. PRADAXA [Concomitant]
     Indication: ANTICOAGULANT THERAPY
  15. METOPROLOL [Concomitant]
     Indication: HEART RATE
     Dosage: 25 MG, UNKNOWN
  16. AMIODARONE [Concomitant]
  17. PSEUDOEPHEDRINE [Concomitant]
  18. ZANTAC [Concomitant]
     Indication: GASTRIC ULCER

REACTIONS (50)
  - Atrial fibrillation [Recovered/Resolved]
  - Cerebrovascular disorder [Unknown]
  - Heart rate irregular [Recovering/Resolving]
  - Head discomfort [Recovered/Resolved]
  - Eye movement disorder [Unknown]
  - Chest discomfort [Unknown]
  - Middle insomnia [Unknown]
  - Discomfort [Unknown]
  - Pain in extremity [Unknown]
  - Dysgeusia [Unknown]
  - Thirst [Unknown]
  - Arthritis [Recovering/Resolving]
  - Diplegia [Unknown]
  - Injection site erythema [Unknown]
  - Muscular weakness [Unknown]
  - Memory impairment [Not Recovered/Not Resolved]
  - Adverse drug reaction [Unknown]
  - Blood pressure abnormal [Not Recovered/Not Resolved]
  - Blood disorder [Unknown]
  - Heart rate increased [Not Recovered/Not Resolved]
  - Somnolence [Unknown]
  - Sneezing [Not Recovered/Not Resolved]
  - Multiple allergies [Unknown]
  - Fear [Unknown]
  - Feeling abnormal [Recovering/Resolving]
  - Haemorrhage subcutaneous [Unknown]
  - Nasopharyngitis [Unknown]
  - Dry skin [Unknown]
  - Hypotension [Recovered/Resolved]
  - Sinusitis [Unknown]
  - Injection site bruising [Unknown]
  - Varicose vein [Recovering/Resolving]
  - Vomiting [Unknown]
  - Constipation [Unknown]
  - Asthenia [Unknown]
  - Headache [Not Recovered/Not Resolved]
  - Arthralgia [Unknown]
  - Dizziness [Not Recovered/Not Resolved]
  - Dyspepsia [Recovering/Resolving]
  - Insomnia [Unknown]
  - Chest pain [Not Recovered/Not Resolved]
  - Cough [Not Recovered/Not Resolved]
  - Dyspnoea [Unknown]
  - Muscle spasms [Unknown]
  - Nausea [Not Recovered/Not Resolved]
  - Vein discolouration [Unknown]
  - Contusion [Unknown]
  - Pain [Unknown]
  - Weight decreased [Unknown]
  - Skin lesion [Unknown]
